FAERS Safety Report 9752313 (Version 1)
Quarter: 2013Q4

REPORT INFORMATION
  Report Type: Spontaneous
  Country: AU (occurrence: None)
  Receive Date: 20131211
  Receipt Date: 20131211
  Transmission Date: 20140711
  Serious: Yes (Hospitalization)
  Sender: FDA-Public Use
  Company Number: 2013AP010198

PATIENT
  Age: 26 Year
  Sex: Female

DRUGS (4)
  1. SERTRALINE (SERTRALINE) [Suspect]
     Indication: DEPRESSION
  2. RANITIDINE (RANITIDINE) [Suspect]
     Indication: GASTROOESOPHAGEAL REFLUX DISEASE
  3. DESVENLAFAXINE (DESVENLAFAXINE) [Concomitant]
  4. METOCLOPRAMIDE (METOCLOPRAMINE) [Concomitant]

REACTIONS (6)
  - Drug-induced liver injury [None]
  - Drug interaction [None]
  - Vomiting [None]
  - Chromaturia [None]
  - Epigastric discomfort [None]
  - Pruritus [None]
